FAERS Safety Report 7297052-0 (Version None)
Quarter: 2011Q1

REPORT INFORMATION
  Report Type: 
  Country: None (occurrence: None)
  Receive Date: 20110216
  Receipt Date: 20110207
  Transmission Date: 20110831
  Serious: Yes (Other)
  Sender: FDA-Public Use
  Company Number: US-CEPHALON-2011000602

PATIENT
  Sex: Male

DRUGS (2)
  1. MINOCYCLINE HCL [Concomitant]
     Dates: start: 20100101
  2. NUVIGIL [Suspect]
     Indication: SOMNOLENCE
     Route: 048
     Dates: start: 20101001, end: 20101201

REACTIONS (2)
  - LIBIDO DECREASED [None]
  - HYPOTHYROIDISM [None]
